FAERS Safety Report 8764444 (Version 2)
Quarter: 2012Q4

REPORT INFORMATION
  Report Type: Report from Study
  Country: US (occurrence: US)
  Receive Date: 20120831
  Receipt Date: 20120917
  Transmission Date: 20130627
  Serious: Yes (Hospitalization)
  Sender: FDA-Public Use
  Company Number: US-ABBOTT-12P-163-0973118-00

PATIENT
  Age: 76 Year
  Sex: Female
  Weight: 61.74 kg

DRUGS (16)
  1. HUMIRA [Suspect]
     Indication: CROHN^S DISEASE
     Dates: start: 20120820, end: 20120820
  2. EPIDURAL STEROID INJECTION [Suspect]
     Indication: BACK PAIN
     Dates: start: 20120820, end: 20120820
  3. MORPHINE [Concomitant]
     Indication: PRODUCT USED FOR UNKNOWN INDICATION
  4. XANAX [Concomitant]
     Indication: PRODUCT USED FOR UNKNOWN INDICATION
     Route: 048
  5. IMURAN [Concomitant]
     Indication: PRODUCT USED FOR UNKNOWN INDICATION
     Route: 048
  6. PROPRANOLOL [Concomitant]
     Indication: PRODUCT USED FOR UNKNOWN INDICATION
     Route: 048
  7. PROTONIX [Concomitant]
     Indication: PRODUCT USED FOR UNKNOWN INDICATION
     Route: 048
  8. SUCRALFATE [Concomitant]
     Indication: PRODUCT USED FOR UNKNOWN INDICATION
  9. METOCLOPRAMIDE [Concomitant]
     Indication: PRODUCT USED FOR UNKNOWN INDICATION
     Dosage: 5 MG UP TO QID PRN
  10. CYMBALTA [Concomitant]
     Indication: PRODUCT USED FOR UNKNOWN INDICATION
     Route: 048
  11. REQUIP [Concomitant]
     Indication: PRODUCT USED FOR UNKNOWN INDICATION
     Route: 048
  12. CALCIUM + VITAMIN D [Concomitant]
     Indication: PRODUCT USED FOR UNKNOWN INDICATION
     Route: 048
  13. MAGNESIUM [Concomitant]
     Indication: PRODUCT USED FOR UNKNOWN INDICATION
     Route: 048
  14. VITAMIN D3 [Concomitant]
     Indication: PRODUCT USED FOR UNKNOWN INDICATION
  15. BABY ASA [Concomitant]
     Indication: PRODUCT USED FOR UNKNOWN INDICATION
     Route: 048
  16. PREDNISONE [Concomitant]
     Indication: PRODUCT USED FOR UNKNOWN INDICATION
     Route: 048

REACTIONS (6)
  - Skin discolouration [Recovering/Resolving]
  - Electrocardiogram abnormal [Recovered/Resolved]
  - Cardiac enzymes increased [Recovered/Resolved]
  - Chronic obstructive pulmonary disease [Not Recovered/Not Resolved]
  - Asthenia [Not Recovered/Not Resolved]
  - Lobar pneumonia [Recovering/Resolving]
